FAERS Safety Report 15211321 (Version 1)
Quarter: 2018Q3

REPORT INFORMATION
  Report Type: Spontaneous
  Country: US (occurrence: US)
  Receive Date: 20180630
  Receipt Date: 20180630
  Transmission Date: 20181010
  Serious: No
  Sender: FDA-Public Use
  Company Number: None

PATIENT
  Age: 67 Year
  Sex: Female

DRUGS (1)
  1. IBRANCE [Suspect]
     Active Substance: PALBOCICLIB
     Dosage: 05/30/2018 TO 30?JUN?2099
     Dates: start: 20180630

REACTIONS (1)
  - Product storage error [None]

NARRATIVE: CASE EVENT DATE: 20180630
